FAERS Safety Report 23384535 (Version 1)
Quarter: 2024Q1

REPORT INFORMATION
  Report Type: Spontaneous
  Country: US (occurrence: US)
  Receive Date: 20240109
  Receipt Date: 20240109
  Transmission Date: 20240410
  Serious: No
  Sender: FDA-Public Use
  Company Number: US-PFIZER INC-202400004094

PATIENT
  Age: 30 Year
  Sex: Female

DRUGS (2)
  1. OXBRYTA [Suspect]
     Active Substance: VOXELOTOR
     Dosage: 500MG, 3 TABLETS ONCE DAILY, ORALLY
     Route: 048
  2. HYDROXYUREA [Suspect]
     Active Substance: HYDROXYUREA
     Dosage: UNK

REACTIONS (1)
  - Nausea [Unknown]
